FAERS Safety Report 16956060 (Version 1)
Quarter: 2019Q4

REPORT INFORMATION
  Report Type: Spontaneous
  Country: US (occurrence: US)
  Receive Date: 20191024
  Receipt Date: 20191024
  Transmission Date: 20200122
  Serious: Yes (Disabling, Other)
  Sender: FDA-Public Use
  Company Number: US-ELI_LILLY_AND_COMPANY-US201910006135

PATIENT
  Sex: Female

DRUGS (4)
  1. HUMALOG [Suspect]
     Active Substance: INSULIN LISPRO
     Indication: GESTATIONAL DIABETES
  2. METFORMIN ER [Concomitant]
     Active Substance: METFORMIN HYDROCHLORIDE
     Indication: TYPE 2 DIABETES MELLITUS
     Dosage: 750 MG, BID
  3. HUMALOG [Suspect]
     Active Substance: INSULIN LISPRO
     Indication: TYPE 2 DIABETES MELLITUS
     Dosage: UNK UNK, PRN
     Route: 058
  4. BASAGLAR [Concomitant]
     Active Substance: INSULIN GLARGINE
     Indication: TYPE 2 DIABETES MELLITUS
     Dosage: 40 DOSAGE FORM, EACH MORNING
     Route: 058

REACTIONS (10)
  - Intervertebral disc disorder [Recovering/Resolving]
  - Blood glucose increased [Recovering/Resolving]
  - Spinal fracture [Recovering/Resolving]
  - Maternal exposure during pregnancy [Recovered/Resolved]
  - Pain [Recovering/Resolving]
  - Fall [Recovering/Resolving]
  - Hypertension [Recovering/Resolving]
  - Visual impairment [Recovering/Resolving]
  - Depression [Recovering/Resolving]
  - Maternal exposure during breast feeding [Recovered/Resolved]

NARRATIVE: CASE EVENT DATE: 1996
